FAERS Safety Report 4717336-7 (Version None)
Quarter: 2005Q3

REPORT INFORMATION
  Report Type: 
  Country: None (occurrence: None)
  Receive Date: 20050712
  Receipt Date: 20040614
  Transmission Date: 20060218
  Serious: Yes (Other)
  Sender: FDA-Public Use
  Company Number: HQWYE456015JUN04

PATIENT
  Age: 73 Year
  Sex: Male
  Weight: 127.57 kg

DRUGS (2)
  1. MYLOTARG [Suspect]
     Indication: ACUTE LEUKAEMIA
     Dosage: 23 MG 1X PER 1 DAY, INTRAVENOUS
     Route: 042
     Dates: start: 20040602, end: 20040602
  2. MYLOTARG [Suspect]
     Dosage: 23 MG 1X PER 1 DAY, INTRAVENOUS
     Route: 042
     Dates: start: 20040616, end: 20040616

REACTIONS (2)
  - PLATELET COUNT DECREASED [None]
  - WHITE BLOOD CELL COUNT DECREASED [None]
